FAERS Safety Report 5368356-3 (Version None)
Quarter: 2007Q2

REPORT INFORMATION
  Report Type: 
  Country: None (occurrence: None)
  Receive Date: 20070521
  Receipt Date: 20070611
  Transmission Date: 20071010
  Serious: Yes (Hospitalization)
  Sender: FDA-Public Use
  Company Number: L07-ITA-01814-01

PATIENT
  Age: 55 Year
  Sex: Male

DRUGS (1)
  1. CARBAMAZEPINE [Suspect]
     Indication: PARTIAL SEIZURES
     Dosage: 600 MG QD

REACTIONS (3)
  - APHASIA [None]
  - CEREBRAL HAEMORRHAGE [None]
  - STATUS EPILEPTICUS [None]
